FAERS Safety Report 21768681 (Version 2)
Quarter: 2022Q4

REPORT INFORMATION
  Report Type: Spontaneous
  Country: JP (occurrence: JP)
  Receive Date: 20221222
  Receipt Date: 20221229
  Transmission Date: 20230112
  Serious: Yes (Hospitalization)
  Sender: FDA-Public Use
  Company Number: JP-SAKK-2021SA317884AA

PATIENT
  Age: 10 Month
  Sex: Male
  Weight: 7.7 kg

DRUGS (12)
  1. SABRIL [Suspect]
     Active Substance: VIGABATRIN
     Indication: Infantile spasms
     Dosage: 190 MG, BID
     Route: 048
     Dates: start: 20210917, end: 20211111
  2. SABRIL [Suspect]
     Active Substance: VIGABATRIN
     Dosage: 350 MG, BID
     Route: 048
     Dates: start: 20211112, end: 20211214
  3. SABRIL [Suspect]
     Active Substance: VIGABATRIN
     Dosage: 500 MG, BID
     Route: 048
     Dates: start: 20211215, end: 20220224
  4. SABRIL [Suspect]
     Active Substance: VIGABATRIN
     Dosage: 600 MG, BID
     Route: 048
     Dates: start: 20220225, end: 20220725
  5. SABRIL [Suspect]
     Active Substance: VIGABATRIN
     Dosage: 450 MG, BID
     Route: 048
     Dates: start: 20220726, end: 20220829
  6. SABRIL [Suspect]
     Active Substance: VIGABATRIN
     Dosage: 300 MG, BID
     Route: 048
     Dates: start: 20220830, end: 20220926
  7. SABRIL [Suspect]
     Active Substance: VIGABATRIN
     Dosage: 150 MG, BID
     Route: 048
     Dates: start: 20220927, end: 20221025
  8. CLOBAZAM [Concomitant]
     Active Substance: CLOBAZAM
     Indication: Infantile spasms
     Dosage: DAILY DOSE: 3 MG
     Route: 048
     Dates: start: 20210820, end: 20210901
  9. CLOBAZAM [Concomitant]
     Active Substance: CLOBAZAM
     Dosage: DAILY DOSE: 3.5 MG
     Route: 048
     Dates: start: 20210902, end: 20220224
  10. VALPROATE SODIUM [Concomitant]
     Active Substance: VALPROATE SODIUM
     Indication: Infantile spasms
     Dosage: DAILY DOSE: 300 MG
     Route: 048
  11. ZONISAMIDE [Concomitant]
     Active Substance: ZONISAMIDE
     Indication: Infantile spasms
     Dosage: DAILY DOSE: 45 MG
     Route: 048
  12. FERRIC PYROPHOSPHATE [Concomitant]
     Active Substance: FERRIC PYROPHOSPHATE
     Indication: Iron deficiency anaemia
     Dosage: DAILY DOSE: 4 ML
     Route: 048
     Dates: end: 20211006

REACTIONS (2)
  - Respiratory syncytial virus infection [Recovered/Resolved]
  - Drug ineffective [Unknown]

NARRATIVE: CASE EVENT DATE: 20210924
